FAERS Safety Report 7715815-1 (Version None)
Quarter: 2011Q3

REPORT INFORMATION
  Report Type: 
  Country: None (occurrence: None)
  Receive Date: 20110829
  Receipt Date: 20110829
  Transmission Date: 20111222
  Serious: No
  Sender: FDA-Public Use
  Company Number: None

PATIENT
  Age: 45 Year
  Sex: Female
  Weight: 90.718 kg

DRUGS (1)
  1. CIPROFLOXACIN [Suspect]
     Indication: GASTRIC DISORDER
     Dates: start: 20100325, end: 20100425

REACTIONS (3)
  - TENDONITIS [None]
  - NODULE [None]
  - TENDON PAIN [None]
